FAERS Safety Report 8397732-X (Version None)
Quarter: 2012Q2

REPORT INFORMATION
  Report Type: 
  Country: None (occurrence: None)
  Receive Date: 20120323
  Receipt Date: 20110302
  Transmission Date: 20120825
  Serious: Yes (Other)
  Sender: FDA-Public Use
  Company Number: 163-21880-11011565

PATIENT
  Age: 72 Year
  Sex: Female
  Weight: 54.4316 kg

DRUGS (16)
  1. VELCADE [Concomitant]
  2. ZOMETA [Concomitant]
  3. ASPIRIN [Concomitant]
  4. VITAMIN B COMPLEX (B-KOMPLEX ^LECIVA^) [Concomitant]
  5. DOXYCYCLINE [Concomitant]
  6. ZITHROMAX [Concomitant]
  7. LEVOXYL [Concomitant]
  8. ACYCLOVIR [Concomitant]
  9. ESTOVEN (ESTOVON) [Concomitant]
  10. PROTONIX [Concomitant]
  11. DEXAMETHASONE [Concomitant]
  12. POTASSIUM CHLORIDE [Concomitant]
  13. REVLIMID [Suspect]
     Indication: MULTIPLE MYELOMA
     Dosage: 15 MG, DAILY X 14 DAYS W/14 DAYS OFF, PO
     Route: 048
     Dates: start: 20110131
  14. REVLIMID [Suspect]
     Indication: MULTIPLE MYELOMA
     Dosage: 15 MG, DAILY X 14 DAYS W/14 DAYS OFF, PO
     Route: 048
     Dates: start: 20101216, end: 20110106
  15. FISH OIL (FISH OIL) [Concomitant]
  16. VITAMIN B6 [Concomitant]

REACTIONS (1)
  - PNEUMONIA [None]
